FAERS Safety Report 19176759 (Version 1)
Quarter: 2021Q2

REPORT INFORMATION
  Report Type: Spontaneous
  Country: US (occurrence: US)
  Receive Date: 20210424
  Receipt Date: 20210424
  Transmission Date: 20210717
  Serious: Yes (Hospitalization, Other)
  Sender: FDA-Public Use
  Company Number: US-ABBVIE-21K-163-3874223-00

PATIENT
  Age: 65 Year
  Sex: Female
  Weight: 70.3 kg

DRUGS (23)
  1. CYCLOSPORINE. [Suspect]
     Active Substance: CYCLOSPORINE
     Indication: PRODUCT USED FOR UNKNOWN INDICATION
     Route: 065
  2. DYAZIDE [Suspect]
     Active Substance: HYDROCHLOROTHIAZIDE\TRIAMTERENE
     Indication: PRODUCT USED FOR UNKNOWN INDICATION
     Route: 065
  3. VICODIN [Concomitant]
     Active Substance: ACETAMINOPHEN\HYDROCODONE BITARTRATE
     Indication: PRODUCT USED FOR UNKNOWN INDICATION
  4. REFRESH [Concomitant]
     Active Substance: UNSPECIFIED INGREDIENT
     Indication: PRODUCT USED FOR UNKNOWN INDICATION
  5. SYSTANE (HYPROMELLOSE 2910 (4000 MPA.S)) [Concomitant]
     Active Substance: HYPROMELLOSE 2910 (4000 MPA.S)
     Indication: PRODUCT USED FOR UNKNOWN INDICATION
  6. HUMIRA [Suspect]
     Active Substance: ADALIMUMAB
     Indication: PRODUCT USED FOR UNKNOWN INDICATION
     Route: 058
  7. HEPATITIS B VACCINE [Suspect]
     Active Substance: HEPATITIS B VIRUS VACCINE
     Indication: PRODUCT USED FOR UNKNOWN INDICATION
     Route: 065
  8. PREVACID [Concomitant]
     Active Substance: LANSOPRAZOLE
     Indication: PRODUCT USED FOR UNKNOWN INDICATION
  9. TAZACT [Concomitant]
     Active Substance: PIPERACILLIN SODIUM\TAZOBACTAM SODIUM
     Indication: PRODUCT USED FOR UNKNOWN INDICATION
  10. COMPAZINE [Suspect]
     Active Substance: PROCHLORPERAZINE MALEATE
     Indication: PRODUCT USED FOR UNKNOWN INDICATION
     Route: 065
  11. VITAMIN D [Concomitant]
     Active Substance: VITAMIN D NOS
     Indication: PRODUCT USED FOR UNKNOWN INDICATION
  12. ERYTHROMYCIN. [Suspect]
     Active Substance: ERYTHROMYCIN
     Indication: PRODUCT USED FOR UNKNOWN INDICATION
     Route: 065
  13. FOSAMAX [Concomitant]
     Active Substance: ALENDRONATE SODIUM
     Indication: PRODUCT USED FOR UNKNOWN INDICATION
  14. RITUXAN [Suspect]
     Active Substance: RITUXIMAB
     Indication: PRODUCT USED FOR UNKNOWN INDICATION
     Route: 065
  15. CIPROFLOXACIN. [Suspect]
     Active Substance: CIPROFLOXACIN
     Indication: PRODUCT USED FOR UNKNOWN INDICATION
     Route: 065
  16. DIAMOX SEQUELS [Suspect]
     Active Substance: ACETAZOLAMIDE
     Indication: PRODUCT USED FOR UNKNOWN INDICATION
     Route: 065
  17. PHENERGAN [Concomitant]
     Active Substance: PROMETHAZINE HYDROCHLORIDE
     Indication: PRODUCT USED FOR UNKNOWN INDICATION
  18. COLCHICINE. [Suspect]
     Active Substance: COLCHICINE
     Indication: PRODUCT USED FOR UNKNOWN INDICATION
     Route: 065
  19. DILAUDID [Suspect]
     Active Substance: HYDROMORPHONE HYDROCHLORIDE
     Indication: PAIN
     Route: 042
  20. DOXYCYCLINE. [Suspect]
     Active Substance: DOXYCYCLINE
     Indication: PRODUCT USED FOR UNKNOWN INDICATION
     Route: 065
  21. ACTEMRA [Suspect]
     Active Substance: TOCILIZUMAB
     Indication: PRODUCT USED FOR UNKNOWN INDICATION
     Route: 065
  22. ADVAIR HFA [Concomitant]
     Active Substance: FLUTICASONE PROPIONATE\SALMETEROL XINAFOATE
     Indication: PRODUCT USED FOR UNKNOWN INDICATION
  23. FLEXERIL [Concomitant]
     Active Substance: CYCLOBENZAPRINE HYDROCHLORIDE
     Indication: PRODUCT USED FOR UNKNOWN INDICATION

REACTIONS (57)
  - Chills [Unknown]
  - Skin disorder [Unknown]
  - Rash [Unknown]
  - Interstitial lung disease [Unknown]
  - Nausea [Unknown]
  - Adverse reaction [Recovered/Resolved]
  - Oedema [Unknown]
  - Loss of consciousness [Unknown]
  - Wound [Unknown]
  - Visual impairment [Unknown]
  - Abdominal pain [Unknown]
  - Gait disturbance [Unknown]
  - Musculoskeletal stiffness [Unknown]
  - Ear pain [Unknown]
  - Arthritis infective [Unknown]
  - Tenderness [Unknown]
  - Drug intolerance [Unknown]
  - Skin warm [Unknown]
  - Osteoarthritis [Unknown]
  - Arthralgia [Unknown]
  - Asthenia [Unknown]
  - Erythema [Unknown]
  - Weight decreased [Recovered/Resolved]
  - Rheumatoid arthritis [Unknown]
  - Dry skin [Unknown]
  - Wheezing [Unknown]
  - Back pain [Unknown]
  - Dysphoria [Unknown]
  - Hallucination [Unknown]
  - Sjogren^s syndrome [Unknown]
  - Appetite disorder [Unknown]
  - Pain [Unknown]
  - Dyspnoea [Unknown]
  - Constipation [Unknown]
  - Myalgia [Unknown]
  - Dizziness [Unknown]
  - Thinking abnormal [Unknown]
  - Abdominal discomfort [Unknown]
  - Anaphylactic reaction [Unknown]
  - Haemorrhagic diathesis [Unknown]
  - Sneezing [Unknown]
  - Fatigue [Unknown]
  - Photophobia [Unknown]
  - Pruritus [Unknown]
  - Neck pain [Unknown]
  - Hypoaesthesia [Unknown]
  - Headache [Unknown]
  - Contusion [Unknown]
  - Oral pain [Unknown]
  - Drug hypersensitivity [Unknown]
  - Vomiting [Unknown]
  - Intestinal obstruction [Recovered/Resolved with Sequelae]
  - Rhinorrhoea [Unknown]
  - Dysphagia [Unknown]
  - Diarrhoea [Unknown]
  - Joint swelling [Unknown]
  - Blister [Unknown]

NARRATIVE: CASE EVENT DATE: 201008
